FAERS Safety Report 4895594-6 (Version None)
Quarter: 2006Q1

REPORT INFORMATION
  Report Type: 
  Country: None (occurrence: None)
  Receive Date: 20060125
  Receipt Date: 20060110
  Transmission Date: 20060701
  Serious: Yes (Death)
  Sender: FDA-Public Use
  Company Number: 2005S1011783

PATIENT
  Age: 56 Year
  Sex: Male

DRUGS (9)
  1. CLOZAPINE [Suspect]
     Indication: SCHIZOPHRENIA
     Dosage: SEE IMAGE
     Route: 048
     Dates: start: 20050201, end: 20051106
  2. CLOZAPINE [Suspect]
     Indication: SCHIZOPHRENIA
     Dosage: SEE IMAGE
     Route: 048
     Dates: start: 20050201, end: 20051106
  3. TAMSULOSIN HCL [Concomitant]
  4. TOLTERODINE TARTRATE [Concomitant]
  5. PROPRANOLOL [Concomitant]
  6. QUETIAPINE FUMARATE [Concomitant]
  7. ESCITALOPRAM OXALATE [Concomitant]
  8. LACTULOSE [Concomitant]
  9. MACROGOL [Concomitant]

REACTIONS (2)
  - ARRHYTHMIA [None]
  - CONVULSION [None]
